FAERS Safety Report 6676623-6 (Version None)
Quarter: 2010Q2

REPORT INFORMATION
  Report Type: 
  Country: None (occurrence: None)
  Receive Date: 20100409
  Receipt Date: 20100409
  Transmission Date: 20101027
  Serious: Yes (Life-Threatening, Other)
  Sender: FDA-Public Use
  Company Number: None

PATIENT
  Age: 10 Year
  Sex: Female
  Weight: 33.1126 kg

DRUGS (2)
  1. AMOXICILLIN [Suspect]
     Indication: OTITIS MEDIA
     Dosage: 9 ML 2 TIMES A DAY ONLY TOOK 1 DOSE ORALLY
     Route: 048
     Dates: start: 20100301
  2. AZITHROMYCIN [Concomitant]

REACTIONS (7)
  - ERYTHEMA [None]
  - FEELING ABNORMAL [None]
  - PRURITUS GENERALISED [None]
  - RASH [None]
  - SKIN DISCOLOURATION [None]
  - THROAT IRRITATION [None]
  - URTICARIA [None]
